FAERS Safety Report 23217744 (Version 3)
Quarter: 2023Q4

REPORT INFORMATION
  Report Type: Report from Study
  Country: US (occurrence: US)
  Receive Date: 20231122
  Receipt Date: 20231204
  Transmission Date: 20240110
  Serious: No
  Sender: FDA-Public Use
  Company Number: US-AstraZeneca-CH-00507998A

PATIENT
  Age: 43 Year
  Sex: Female

DRUGS (7)
  1. STRENSIQ [Suspect]
     Active Substance: ASFOTASE ALFA
     Indication: Product used for unknown indication
     Dosage: UNK
     Route: 058
     Dates: start: 20231108
  2. TYLENOL [Concomitant]
     Active Substance: ACETAMINOPHEN
     Indication: Injection site erythema
     Dosage: UNK
     Route: 065
  3. TYLENOL [Concomitant]
     Active Substance: ACETAMINOPHEN
     Indication: Injection site irritation
  4. TYLENOL [Concomitant]
     Active Substance: ACETAMINOPHEN
     Indication: Injection site pruritus
  5. BENADRYL [Concomitant]
     Active Substance: DIPHENHYDRAMINE HYDROCHLORIDE
     Indication: Injection site erythema
     Dosage: UNK
     Route: 065
  6. BENADRYL [Concomitant]
     Active Substance: DIPHENHYDRAMINE HYDROCHLORIDE
     Indication: Injection site irritation
  7. BENADRYL [Concomitant]
     Active Substance: DIPHENHYDRAMINE HYDROCHLORIDE
     Indication: Injection site pruritus

REACTIONS (12)
  - Migraine [Unknown]
  - Headache [Not Recovered/Not Resolved]
  - Lip swelling [Unknown]
  - Injection site irritation [Unknown]
  - Throat irritation [Unknown]
  - Paraesthesia oral [Unknown]
  - Injection site bruising [Unknown]
  - Injection site erythema [Unknown]
  - Injection site pain [Unknown]
  - Injection site rash [Unknown]
  - Injection site pruritus [Unknown]
  - Injection site swelling [Unknown]

NARRATIVE: CASE EVENT DATE: 20231120
